FAERS Safety Report 21200040 (Version 1)
Quarter: 2022Q3

REPORT INFORMATION
  Report Type: Spontaneous
  Country: US (occurrence: None)
  Receive Date: 20220810
  Receipt Date: 20220810
  Transmission Date: 20221026
  Serious: Yes (Life-Threatening, Hospitalization, Disabling, Other)
  Sender: FDA-Public Use
  Company Number: None

PATIENT
  Age: 52 Year
  Sex: Female
  Weight: 108 kg

DRUGS (2)
  1. JARDIANCE [Suspect]
     Active Substance: EMPAGLIFLOZIN
     Indication: Diabetes mellitus
     Dosage: FREQUENCY : DAILY;?
     Dates: start: 20201101, end: 20210102
  2. Insulin metaporatol [Concomitant]

REACTIONS (7)
  - Unresponsive to stimuli [None]
  - Diabetic ketoacidosis [None]
  - Renal failure [None]
  - Sepsis [None]
  - Neuropathy peripheral [None]
  - Near death experience [None]
  - Gait inability [None]

NARRATIVE: CASE EVENT DATE: 20210101
